FAERS Safety Report 9165738 (Version 2)
Quarter: 2013Q1

REPORT INFORMATION
  Report Type: Spontaneous
  Country: IT (occurrence: IT)
  Receive Date: 20130315
  Receipt Date: 20130320
  Transmission Date: 20140127
  Serious: Yes (Hospitalization)
  Sender: FDA-Public Use
  Company Number: PHHY2013IT025195

PATIENT
  Age: 90 Year
  Sex: Male

DRUGS (2)
  1. DICLOFENAC [Suspect]
     Indication: ARTHRALGIA
     Dosage: 1 DF, QD (1 POSOLOGIC UNIT)
     Route: 048
     Dates: start: 20130226, end: 20130304
  2. CO-EFFERALGAN [Suspect]
     Indication: ARTHRALGIA
     Dosage: 500/30 MG, 2 DF, QD (2 POSOLOGIC UNITS)
     Route: 049
     Dates: start: 20130226, end: 20130304

REACTIONS (4)
  - Mallory-Weiss syndrome [Recovered/Resolved]
  - Gastrointestinal haemorrhage [Recovered/Resolved]
  - Hiatus hernia [Recovered/Resolved]
  - Gastritis [Recovered/Resolved]
